FAERS Safety Report 8019045-8 (Version None)
Quarter: 2012Q1

REPORT INFORMATION
  Report Type: 
  Country: None (occurrence: None)
  Receive Date: 20120103
  Receipt Date: 20111221
  Transmission Date: 20120608
  Serious: Yes (Congenital Anomaly)
  Sender: FDA-Public Use
  Company Number: US-ELI_LILLY_AND_COMPANY-US201112006881

PATIENT

DRUGS (1)
  1. PROZAC [Suspect]
     Dosage: UNK, UNKNOWN
     Route: 064
     Dates: start: 20101001

REACTIONS (5)
  - PREMATURE BABY [None]
  - CARDIAC MURMUR [None]
  - CARDIAC VALVE DISEASE [None]
  - TYROSINAEMIA [None]
  - FOETAL EXPOSURE DURING PREGNANCY [None]
